FAERS Safety Report 5076412-2 (Version None)
Quarter: 2006Q3

REPORT INFORMATION
  Report Type: 
  Country: None (occurrence: None)
  Receive Date: 20060728
  Receipt Date: 20060222
  Transmission Date: 20061208
  Serious: Yes (Hospitalization)
  Sender: FDA-Public Use
  Company Number: US200602005269

PATIENT
  Age: 15 Year
  Sex: Female
  Weight: 104.3 kg

DRUGS (3)
  1. STRATTERA [Suspect]
     Dosage: SEE IMAGE
     Route: 048
     Dates: start: 20030101, end: 20050701
  2. STRATTERA [Suspect]
     Dosage: SEE IMAGE
     Route: 048
     Dates: start: 20050101
  3. ABILIFY [Concomitant]

REACTIONS (5)
  - ALANINE AMINOTRANSFERASE INCREASED [None]
  - ASPARTATE AMINOTRANSFERASE INCREASED [None]
  - DEPRESSION [None]
  - HEPATIC ENZYME ABNORMAL [None]
  - PRESCRIBED OVERDOSE [None]
